FAERS Safety Report 24971949 (Version 1)
Quarter: 2025Q1

REPORT INFORMATION
  Report Type: Report from Study
  Country: US (occurrence: US)
  Receive Date: 20250214
  Receipt Date: 20250214
  Transmission Date: 20250409
  Serious: Yes (Hospitalization, Other)
  Sender: ALEXION PHARMACEUTICALS
  Company Number: US-AstraZeneca-CH-00803160A

PATIENT

DRUGS (5)
  1. STRENSIQ [Suspect]
     Active Substance: ASFOTASE ALFA
     Indication: Hypophosphatasia
     Route: 065
  2. METHOTREXATE [Suspect]
     Active Substance: METHOTREXATE
     Route: 065
  3. METHOTREXATE [Suspect]
     Active Substance: METHOTREXATE
     Dosage: 20 MILLIGRAM, QW
     Route: 065
  4. REMICADE [Suspect]
     Active Substance: INFLIXIMAB
     Route: 065
  5. FOLIC ACID [Concomitant]
     Active Substance: FOLIC ACID
     Dosage: 3 MILLIGRAM, QD
     Route: 065

REACTIONS (10)
  - Biliary dilatation [Unknown]
  - Colitis microscopic [Unknown]
  - Blood phosphorus increased [Unknown]
  - Musculoskeletal chest pain [Unknown]
  - Pain in extremity [Recovering/Resolving]
  - Rhinalgia [Unknown]
  - Influenza [Unknown]
  - Epistaxis [Unknown]
  - Anxiety [Unknown]
  - Insurance issue [Unknown]
